FAERS Safety Report 7111176-X (Version None)
Quarter: 2010Q4

REPORT INFORMATION
  Report Type: 
  Country: None (occurrence: None)
  Receive Date: 20101118
  Receipt Date: 20101005
  Transmission Date: 20110411
  Serious: Yes (Hospitalization, Other)
  Sender: FDA-Public Use
  Company Number: US-BAXTER-2010BH001601

PATIENT
  Age: 67 Year
  Sex: Male
  Weight: 127 kg

DRUGS (17)
  1. HEPARIN SODIUM INJECTION [Suspect]
     Indication: ACUTE CORONARY SYNDROME
     Route: 040
     Dates: start: 20080108, end: 20080108
  2. HEPARIN SODIUM INJECTION [Suspect]
     Indication: PULMONARY EMBOLISM
     Route: 040
     Dates: start: 20080108, end: 20080108
  3. HEPARIN SODIUM INJECTION [Suspect]
     Route: 042
     Dates: start: 20080108, end: 20080116
  4. HEPARIN SODIUM INJECTION [Suspect]
     Route: 042
     Dates: start: 20080108, end: 20080116
  5. HEPARIN SODIUM 5,000 UNITS IN DEXTROSE 5% [Suspect]
     Indication: ACUTE CORONARY SYNDROME
     Route: 042
     Dates: start: 20080108, end: 20080108
  6. HEPARIN SODIUM 5,000 UNITS IN DEXTROSE 5% [Suspect]
     Indication: PULMONARY EMBOLISM
     Route: 042
     Dates: start: 20080108, end: 20080108
  7. HEPARIN SODIUM 5,000 UNITS IN DEXTROSE 5% [Suspect]
     Route: 042
     Dates: start: 20080108, end: 20080116
  8. HEPARIN SODIUM 5,000 UNITS IN DEXTROSE 5% [Suspect]
     Route: 042
     Dates: start: 20080108, end: 20080116
  9. NITROSTAT [Concomitant]
     Indication: CHEST PAIN
     Route: 060
  10. MORPHINE SULFATE [Concomitant]
     Indication: PAIN
     Route: 042
  11. ASPIRIN [Concomitant]
     Indication: CHEST PAIN
     Route: 048
  12. WARFARIN SODIUM [Concomitant]
     Indication: PRODUCT USED FOR UNKNOWN INDICATION
     Route: 065
  13. FENTANYL [Concomitant]
     Indication: CATHETERISATION CARDIAC
     Route: 042
  14. VERSED [Concomitant]
     Indication: SEDATION
     Route: 042
  15. LOPRESSOR [Concomitant]
     Indication: HYPERTENSION
     Route: 048
  16. MAALOX                                  /USA/ [Concomitant]
     Indication: DYSPEPSIA
     Route: 048
  17. CATHFLO ACTIVASE [Concomitant]
     Indication: PULMONARY EMBOLISM
     Route: 042

REACTIONS (10)
  - ACTIVITIES OF DAILY LIVING IMPAIRED [None]
  - ASTHENIA [None]
  - CHEST PAIN [None]
  - CONFUSIONAL STATE [None]
  - DIZZINESS [None]
  - DYSPHAGIA [None]
  - HYPOTENSION [None]
  - HYPOXIA [None]
  - PYREXIA [None]
  - VISION BLURRED [None]
